FAERS Safety Report 11028245 (Version 1)
Quarter: 2015Q2

REPORT INFORMATION
  Report Type: Spontaneous
  Country: US (occurrence: US)
  Receive Date: 20150414
  Receipt Date: 20150414
  Transmission Date: 20150821
  Serious: No
  Sender: FDA-Public Use
  Company Number: US-ELI_LILLY_AND_COMPANY-US201504002585

PATIENT
  Sex: Female

DRUGS (4)
  1. CALCIUM + MAGNESIUM [Concomitant]
  2. FORTEO [Suspect]
     Active Substance: TERIPARATIDE
     Dosage: UNK UNK, UNKNOWN
     Route: 065
     Dates: end: 20150404
  3. GLUCOSAMINE [Concomitant]
     Active Substance: GLUCOSAMINE
  4. FORTEO [Suspect]
     Active Substance: TERIPARATIDE
     Indication: OSTEOPOROSIS
     Dosage: UNK, UNKNOWN
     Route: 065
     Dates: start: 201411

REACTIONS (9)
  - Renal pain [Unknown]
  - Arthralgia [Unknown]
  - Dizziness [Unknown]
  - Medication error [Unknown]
  - Urinary tract infection [Unknown]
  - Back pain [Unknown]
  - Constipation [Unknown]
  - Malaise [Unknown]
  - Nausea [Unknown]
